FAERS Safety Report 17808167 (Version 1)
Quarter: 2020Q2

REPORT INFORMATION
  Report Type: Spontaneous
  Country: US (occurrence: US)
  Receive Date: 20200520
  Receipt Date: 20200520
  Transmission Date: 20200714
  Serious: Yes (Hospitalization)
  Sender: FDA-Public Use
  Company Number: US-EISAI MEDICAL RESEARCH-EC-2020-074606

PATIENT
  Age: 73 Year
  Sex: Female
  Weight: 49.9 kg

DRUGS (4)
  1. LITHIUM. [Concomitant]
     Active Substance: LITHIUM
     Indication: BIPOLAR DISORDER
     Dosage: DOSE AND FREQUENCY UNKNOWN
     Route: 065
     Dates: start: 1990
  2. ARICEPT [Suspect]
     Active Substance: DONEPEZIL HYDROCHLORIDE
     Dosage: DOSE AND FREQUENCY UNKNOWN
     Dates: start: 202005
  3. ARICEPT [Suspect]
     Active Substance: DONEPEZIL HYDROCHLORIDE
     Indication: DEMENTIA
     Dosage: DOSE AND FREQUENCY UNKNOWN
     Route: 048
     Dates: start: 2018, end: 202005
  4. NAMENDA [Concomitant]
     Active Substance: MEMANTINE HYDROCHLORIDE
     Indication: DEMENTIA
     Dosage: DOSE AND FREQUENCY UNKNOWN
     Route: 065

REACTIONS (4)
  - Abnormal behaviour [Unknown]
  - Pneumonia [Recovered/Resolved]
  - Hallucination [Not Recovered/Not Resolved]
  - Aphasia [Unknown]

NARRATIVE: CASE EVENT DATE: 202005
